FAERS Safety Report 14000895 (Version 1)
Quarter: 2017Q3

REPORT INFORMATION
  Report Type: Spontaneous
  Country: US (occurrence: US)
  Receive Date: 20170922
  Receipt Date: 20170922
  Transmission Date: 20171128
  Serious: Yes (Hospitalization)
  Sender: FDA-Public Use
  Company Number: US-PIRAMAL CRITICAL CARE LIMITED-T201302786

PATIENT

DRUGS (1)
  1. GABLOFEN [Suspect]
     Active Substance: BACLOFEN
     Indication: MUSCLE SPASTICITY
     Dosage: 550 ?G, QD
     Route: 037

REACTIONS (4)
  - Hypertonia [Recovered/Resolved]
  - Device failure [Recovered/Resolved]
  - Drug ineffective [Recovered/Resolved]
  - Device occlusion [Recovered/Resolved]
